FAERS Safety Report 7968138-X (Version None)
Quarter: 2011Q4

REPORT INFORMATION
  Report Type: 
  Country: None (occurrence: None)
  Receive Date: 20111209
  Receipt Date: 20111202
  Transmission Date: 20120403
  Serious: Yes (Death, Hospitalization)
  Sender: FDA-Public Use
  Company Number: KR-BRISTOL-MYERS SQUIBB COMPANY-16202384

PATIENT
  Age: 67 Year
  Sex: Female
  Weight: 47 kg

DRUGS (31)
  1. MIDAZOLAM [Concomitant]
     Dates: start: 20110930, end: 20110930
  2. ACETYLCYSTEINE [Concomitant]
     Dates: start: 20110907
  3. AMINOPHYLLINE [Concomitant]
     Dates: start: 20110928, end: 20110930
  4. BETHANECHOL CHLORIDE [Concomitant]
     Dates: start: 20110928, end: 20110930
  5. ATENOLOL [Concomitant]
     Dates: start: 20110101, end: 20111004
  6. QUETIAPINE FUMARATE [Concomitant]
     Dates: start: 20110927, end: 20110927
  7. MOXIFLOXACIN [Concomitant]
     Dates: start: 20110928, end: 20110928
  8. ALBUTEROL SULFATE AUTOHALER [Concomitant]
  9. ROCURONIUM BROMIDE [Concomitant]
     Dates: start: 20110930, end: 20110930
  10. VANCOMYCIN [Concomitant]
     Dates: start: 20110930, end: 20111013
  11. INSULIN ASPART [Concomitant]
     Dates: start: 20111004, end: 20111017
  12. DEXTROSE [Concomitant]
  13. BARIUM SULFATE [Concomitant]
     Dates: start: 20110101, end: 20110927
  14. HYDROCHLOROTHIAZIDE [Concomitant]
     Dates: start: 20110101, end: 20111004
  15. FUROSEMIDE [Concomitant]
  16. NICARDIPINE HCL [Concomitant]
     Dates: start: 20111001, end: 20111004
  17. PREDNISOLONE [Concomitant]
     Dates: start: 20110927, end: 20111008
  18. SEPTRA [Concomitant]
     Dates: start: 20110927, end: 20111008
  19. IPRATROPIUM BROMIDE [Concomitant]
  20. TAZOBACTAM [Concomitant]
     Dates: start: 20110930, end: 20111013
  21. PACLITAXEL [Suspect]
     Indication: GASTRIC CANCER
     Dosage: PRIOR TO EVENT: 16SEP11.
     Route: 042
     Dates: start: 20110803, end: 20110916
  22. MEGESTROL ACETATE [Concomitant]
     Dates: start: 20110907
  23. ACETAMINOPHEN [Concomitant]
     Dates: start: 20110930, end: 20110930
  24. SODIUM CHLORIDE [Concomitant]
     Dates: start: 20111001, end: 20111003
  25. TAMSULOSIN HCL [Concomitant]
     Dates: start: 20110831, end: 20110930
  26. ATROPINE [Concomitant]
     Dates: start: 20110928, end: 20110928
  27. RANITIDINE [Concomitant]
     Dates: start: 20110928, end: 20110928
  28. DOMPERIDONE [Concomitant]
     Dates: start: 20110907
  29. MEPERIDINE HCL [Concomitant]
     Dates: start: 20110928, end: 20110928
  30. VECURONIUM BROMIDE [Concomitant]
     Dates: start: 20110930, end: 20111004
  31. DOPAMINE HCL [Concomitant]
     Dates: start: 20111010, end: 20111010

REACTIONS (2)
  - PNEUMONITIS [None]
  - MULTI-ORGAN FAILURE [None]
